FAERS Safety Report 9905282 (Version 2)
Quarter: 2014Q2

REPORT INFORMATION
  Report Type: Spontaneous
  Country: US (occurrence: US)
  Receive Date: 20140218
  Receipt Date: 20140614
  Transmission Date: 20141212
  Serious: Yes (Other)
  Sender: FDA-Public Use
  Company Number: US-ABBVIE-14P-163-1200711-00

PATIENT
  Age: 67 Year
  Sex: Female
  Weight: 57.2 kg

DRUGS (6)
  1. SYNTHROID [Suspect]
     Indication: HYPOTHYROIDISM
     Route: 048
  2. SYNTHROID [Suspect]
     Route: 048
  3. SYNTHROID [Suspect]
     Indication: HYPOTHYROIDISM
     Route: 048
  4. SYNTHROID [Suspect]
     Indication: HYPOTHYROIDISM
     Route: 048
  5. SYNTHROID [Suspect]
     Indication: HYPOTHYROIDISM
     Route: 048
  6. SYNTHROID [Suspect]
     Indication: HYPOTHYROIDISM
     Route: 048
     Dates: start: 1989, end: 1999

REACTIONS (2)
  - Invasive ductal breast carcinoma [Recovered/Resolved]
  - Fatigue [Not Recovered/Not Resolved]
